FAERS Safety Report 5279019-7 (Version None)
Quarter: 2007Q1

REPORT INFORMATION
  Report Type: 
  Country: None (occurrence: None)
  Receive Date: 20070328
  Receipt Date: 20070119
  Transmission Date: 20070707
  Serious: No
  Sender: FDA-Public Use
  Company Number: US-AMGEN-KDL207678

PATIENT

DRUGS (2)
  1. NEULASTA [Suspect]
     Indication: CHEMOTHERAPY
  2. NEUPOGEN [Suspect]
     Route: 058

REACTIONS (2)
  - NEUTROPHIL COUNT DECREASED [None]
  - THERAPEUTIC RESPONSE DELAYED [None]
